FAERS Safety Report 18040810 (Version 1)
Quarter: 2020Q3

REPORT INFORMATION
  Report Type: Spontaneous
  Country: US (occurrence: US)
  Receive Date: 20200717
  Receipt Date: 20200717
  Transmission Date: 20201103
  Serious: No
  Sender: FDA-Public Use
  Company Number: US-VIFOR (INTERNATIONAL) INC.-VIT-2020-06746

PATIENT
  Age: 43 Year
  Sex: Male

DRUGS (3)
  1. VELTASSA [Suspect]
     Active Substance: PATIROMER
     Indication: HYPERKALAEMIA
     Route: 048
     Dates: start: 201904
  2. VELTASSA [Suspect]
     Active Substance: PATIROMER
     Dosage: ALL OTHER DAY
     Route: 048
     Dates: start: 202005
  3. VELTASSA [Suspect]
     Active Substance: PATIROMER
     Dosage: ON EVERY MONDAY, WEDNESDAY AND FRIDAY
     Route: 048
     Dates: start: 202005

REACTIONS (3)
  - Product dose omission issue [Unknown]
  - Off label use [Unknown]
  - Blood potassium increased [Unknown]

NARRATIVE: CASE EVENT DATE: 202005
